FAERS Safety Report 18334927 (Version 1)
Quarter: 2020Q4

REPORT INFORMATION
  Report Type: Spontaneous
  Country: DE (occurrence: DE)
  Receive Date: 20201001
  Receipt Date: 20201001
  Transmission Date: 20210113
  Serious: Yes (Hospitalization)
  Sender: FDA-Public Use
  Company Number: DE-TEVA-2020-DE-1832250

PATIENT
  Age: 69 Year
  Sex: Female
  Weight: 41 kg

DRUGS (6)
  1. PREDNISOLON [Concomitant]
     Active Substance: PREDNISOLONE
     Dosage: 5 MILLIGRAM DAILY;  1-0-0-0
     Route: 048
  2. BERODUAL [Concomitant]
     Active Substance: FENOTEROL HYDROBROMIDE\IPRATROPIUM BROMIDE
     Dosage: NK MCG, IF NECESSARY
     Route: 055
  3. TORASEMID [Suspect]
     Active Substance: TORSEMIDE
     Dosage: 3 DOSAGE FORMS DAILY; 30 MG, 3-0-0-0
     Route: 048
  4. BISOPROLOL [Concomitant]
     Active Substance: BISOPROLOL
     Dosage: 1 DOSAGE FORMS DAILY; NK MG, 1-0-0-0
     Route: 048
  5. BECLOMETASON/FORMOTEROL/GLYCOPYRRONIUMBROMID [Concomitant]
     Dosage: 3 DOSAGE FORMS DAILY; NK MCG, 1-1-1-0
     Route: 055
  6. IBUPROFEN. [Concomitant]
     Active Substance: IBUPROFEN
     Dosage: NK MG, IF NECESSARY
     Route: 048

REACTIONS (6)
  - Condition aggravated [Unknown]
  - Fatigue [Unknown]
  - General physical health deterioration [Unknown]
  - Dyspnoea [Unknown]
  - Acute respiratory failure [Unknown]
  - Electrolyte imbalance [Unknown]
